FAERS Safety Report 9649332 (Version 2)
Quarter: 2013Q4

REPORT INFORMATION
  Report Type: Spontaneous
  Country: GB (occurrence: GB)
  Receive Date: 20131028
  Receipt Date: 20131219
  Transmission Date: 20140711
  Serious: Yes (Death, Other)
  Sender: FDA-Public Use
  Company Number: GB-PFIZER INC-2013304585

PATIENT
  Age: 46 Year
  Sex: Male

DRUGS (1)
  1. SULFASALAZINE [Suspect]
     Dosage: UNK

REACTIONS (1)
  - Completed suicide [Fatal]
